FAERS Safety Report 11216681 (Version 1)
Quarter: 2015Q2

REPORT INFORMATION
  Report Type: Spontaneous
  Country: AU (occurrence: AU)
  Receive Date: 20150624
  Receipt Date: 20150624
  Transmission Date: 20150821
  Serious: Yes (Life-Threatening, Hospitalization)
  Sender: FDA-Public Use
  Company Number: AU-MYLANLABS-2015M1020967

PATIENT

DRUGS (2)
  1. CLONIDINE HYDROCHLORIDE. [Suspect]
     Active Substance: CLONIDINE HYDROCHLORIDE
     Indication: BACK PAIN
     Dosage: 550 MCG/24 HOURS
     Route: 037
  2. CLONIDINE HYDROCHLORIDE. [Suspect]
     Active Substance: CLONIDINE HYDROCHLORIDE
     Indication: OFF LABEL USE

REACTIONS (4)
  - Device failure [Recovered/Resolved]
  - Hypertensive crisis [Recovered/Resolved]
  - Drug withdrawal syndrome [Recovered/Resolved]
  - Stress cardiomyopathy [Recovered/Resolved]
